FAERS Safety Report 8475311-3 (Version None)
Quarter: 2012Q2

REPORT INFORMATION
  Report Type: 
  Country: None (occurrence: None)
  Receive Date: 20120628
  Receipt Date: 20110804
  Transmission Date: 20120825
  Serious: Yes (Hospitalization)
  Sender: FDA-Public Use
  Company Number: US-ROCHE-1077418

PATIENT
  Age: 56 Year
  Sex: Female

DRUGS (8)
  1. ZALTOPROFEN [Concomitant]
  2. ALFACALCIDOL [Concomitant]
  3. BEVACIZUMAB [Suspect]
     Indication: PRODUCT USED FOR UNKNOWN INDICATION
     Route: 065
  4. PEGFILGRASTIM [Suspect]
     Indication: PRODUCT USED FOR UNKNOWN INDICATION
  5. ALLOPURINOL [Concomitant]
  6. ENBREL [Suspect]
     Indication: RHEUMATOID ARTHRITIS
     Route: 058
     Dates: start: 20061110
  7. RHEUMATREX [Suspect]
     Indication: PRODUCT USED FOR UNKNOWN INDICATION
     Route: 048
  8. FOLIAMIN [Concomitant]

REACTIONS (1)
  - LARGE INTESTINE CARCINOMA [None]
